FAERS Safety Report 8014690-8 (Version None)
Quarter: 2011Q4

REPORT INFORMATION
  Report Type: 
  Country: None (occurrence: None)
  Receive Date: 20111229
  Receipt Date: 20111222
  Transmission Date: 20120403
  Serious: Yes (Death, Life-Threatening, Hospitalization, Other)
  Sender: FDA-Public Use
  Company Number: JP-CELGENEUS-087-50794-11123457

PATIENT
  Sex: Male
  Weight: 62 kg

DRUGS (13)
  1. VIDAZA [Suspect]
     Indication: MYELODYSPLASTIC SYNDROME
     Dosage: 75 MILLIGRAM
     Route: 041
     Dates: start: 20110523, end: 20110529
  2. EXJADE [Concomitant]
     Route: 065
  3. PREDNISOLONE [Concomitant]
     Route: 065
  4. DIGOXIN [Concomitant]
     Route: 065
  5. TPN ELECTROLYTES IN PLASTIC CONTAINER [Concomitant]
     Route: 065
  6. CARVEDILOL [Concomitant]
     Route: 065
  7. ASPARA [Concomitant]
     Route: 065
  8. NATEGLINIDE [Concomitant]
     Route: 065
  9. SULFAMETHOXAZOLE AND TRIMETHOPRIM [Concomitant]
     Route: 065
  10. WARFARIN SODIUM [Concomitant]
     Route: 065
  11. LASIX [Concomitant]
     Route: 065
  12. POTASSIUM [Concomitant]
     Route: 065
  13. DEXAMETHASONE SODIUM PHOSPHATE [Concomitant]
     Route: 065

REACTIONS (8)
  - HEPATIC CONGESTION [None]
  - MALAISE [None]
  - HYPOPROTEINAEMIA [None]
  - CYSTITIS [None]
  - CARDIAC FAILURE [None]
  - BLOOD CHOLINESTERASE DECREASED [None]
  - MALNUTRITION [None]
  - HYPOALBUMINAEMIA [None]
